FAERS Safety Report 13706720 (Version 3)
Quarter: 2017Q4

REPORT INFORMATION
  Report Type: Spontaneous
  Country: US (occurrence: US)
  Receive Date: 20170630
  Receipt Date: 20171123
  Transmission Date: 20180320
  Serious: No
  Sender: FDA-Public Use
  Company Number: US-JNJFOC-20170606028

PATIENT
  Age: 55 Year
  Sex: Female
  Weight: 115.67 kg

DRUGS (1)
  1. RISPERDAL CONSTA [Suspect]
     Active Substance: RISPERIDONE
     Indication: SCHIZOAFFECTIVE DISORDER
     Route: 030

REACTIONS (4)
  - Product quality issue [Unknown]
  - Device malfunction [Unknown]
  - Drug dose omission [Unknown]
  - Device leakage [Unknown]

NARRATIVE: CASE EVENT DATE: 20170606
